FAERS Safety Report 10534948 (Version 1)
Quarter: 2014Q4

REPORT INFORMATION
  Report Type: Spontaneous
  Country: US (occurrence: US)
  Receive Date: 20141022
  Receipt Date: 20141022
  Transmission Date: 20150529
  Serious: No
  Sender: FDA-Public Use
  Company Number: US-ASTRAZENECA-2013SE81462

PATIENT
  Sex: Female

DRUGS (1)
  1. CRESTOR [Suspect]
     Active Substance: ROSUVASTATIN CALCIUM
     Route: 048

REACTIONS (8)
  - Impaired driving ability [Unknown]
  - Discomfort [Unknown]
  - Muscular weakness [Unknown]
  - Neck pain [Unknown]
  - Feeling abnormal [Unknown]
  - Headache [Unknown]
  - Off label use [Unknown]
  - Musculoskeletal pain [Unknown]
